APPROVED DRUG PRODUCT: MINOCIN
Active Ingredient: MINOCYCLINE HYDROCHLORIDE
Strength: EQ 50MG BASE/5ML
Dosage Form/Route: SUSPENSION;ORAL
Application: N050445 | Product #001
Applicant: BAUSCH HEALTH US LLC
Approved: Approved Prior to Jan 1, 1982 | RLD: No | RS: No | Type: DISCN